FAERS Safety Report 9146423 (Version 1)
Quarter: 2013Q1

REPORT INFORMATION
  Report Type: Spontaneous
  Country: CA (occurrence: CA)
  Receive Date: 20130307
  Receipt Date: 20130307
  Transmission Date: 20140127
  Serious: Yes (Other)
  Sender: FDA-Public Use
  Company Number: CA-ASTRAZENECA-2013SE10472

PATIENT
  Age: 48 Year
  Sex: Female
  Weight: 63.5 kg

DRUGS (15)
  1. EMLA [Suspect]
     Indication: APPLICATION SITE ANAESTHESIA
     Dosage: ONCE DAILY
     Route: 061
     Dates: start: 20130112, end: 20130112
  2. ATACAND [Concomitant]
     Route: 048
  3. JANUVIA [Concomitant]
  4. PRO METFORMIN [Concomitant]
  5. SYNTHROID [Concomitant]
  6. ATIVAN [Concomitant]
  7. LIPITOR [Concomitant]
  8. PRO ZOPICLONE [Concomitant]
  9. CONTOUR BAN [Concomitant]
     Dates: start: 20121212
  10. APO FLUCONAZOLE [Concomitant]
     Route: 048
  11. PMS NYSTATIN [Concomitant]
     Dosage: 10000 UNITS/ ML
  12. SINUS RINSE [Concomitant]
  13. FUCIDIN [Concomitant]
  14. SOLUNET [Concomitant]
  15. VOLTAREN EMULGEL [Concomitant]

REACTIONS (2)
  - Procedural pain [Recovered/Resolved]
  - Drug ineffective [Recovered/Resolved]
